FAERS Safety Report 9067397 (Version 1)
Quarter: 2013Q1

REPORT INFORMATION
  Report Type: Spontaneous
  Country: US (occurrence: US)
  Receive Date: 20130206
  Receipt Date: 20130206
  Transmission Date: 20140127
  Serious: Yes (Other)
  Sender: FDA-Public Use
  Company Number: US-PURDUE-USA-2013-0098370

PATIENT
  Age: 32 Year
  Sex: Female

DRUGS (1)
  1. MS CONTIN TABLETS [Suspect]
     Indication: BONE DISORDER
     Route: 048

REACTIONS (4)
  - Dental caries [Unknown]
  - Tooth loss [Unknown]
  - Tooth fracture [Unknown]
  - Social avoidant behaviour [Unknown]
